FAERS Safety Report 8071988-5 (Version None)
Quarter: 2012Q1

REPORT INFORMATION
  Report Type: 
  Country: None (occurrence: None)
  Receive Date: 20120124
  Receipt Date: 20120124
  Transmission Date: 20120608
  Serious: Yes (Other)
  Sender: FDA-Public Use
  Company Number: None

PATIENT
  Age: 63 Year
  Sex: Female

DRUGS (3)
  1. EXFORGE [Concomitant]
  2. HUMALOG KWIKPEN [Suspect]
     Indication: BLOOD GLUCOSE INCREASED
     Dosage: PRN INJECTION
  3. LEVOXYL [Concomitant]

REACTIONS (2)
  - INCORRECT DOSE ADMINISTERED BY DEVICE [None]
  - BLOOD GLUCOSE INCREASED [None]
